FAERS Safety Report 26016146 (Version 1)
Quarter: 2025Q4

REPORT INFORMATION
  Report Type: Spontaneous
  Country: IR (occurrence: IR)
  Receive Date: 20251110
  Receipt Date: 20251110
  Transmission Date: 20260118
  Serious: Yes (Hospitalization)
  Sender: SANDOZ
  Company Number: IR-MLMSERVICE-20241021-PI233958-00270-1

PATIENT
  Age: 61 Year
  Sex: Female

DRUGS (3)
  1. HYDROXYCHLOROQUINE [Suspect]
     Active Substance: HYDROXYCHLOROQUINE
     Indication: Systemic lupus erythematosus
     Dosage: 200 MG, QD
     Route: 065
  2. METHOTREXATE [Suspect]
     Active Substance: METHOTREXATE
     Indication: Systemic lupus erythematosus
     Dosage: 7.5 MG
     Route: 065
  3. PREDNISOLONE ACETATE [Suspect]
     Active Substance: PREDNISOLONE ACETATE
     Indication: Systemic lupus erythematosus
     Dosage: 5 MG, BID
     Route: 065

REACTIONS (2)
  - Infection protozoal [Recovered/Resolved]
  - Pneumonia [Recovered/Resolved]
